FAERS Safety Report 7441953-7 (Version None)
Quarter: 2011Q2

REPORT INFORMATION
  Report Type: 
  Country: None (occurrence: None)
  Receive Date: 20110428
  Receipt Date: 20100730
  Transmission Date: 20111010
  Serious: No
  Sender: FDA-Public Use
  Company Number: US-ASTRAZENECA-2010SE35987

PATIENT
  Sex: Female

DRUGS (13)
  1. ZOMIG [Suspect]
     Route: 048
  2. ASPIRIN [Concomitant]
  3. OMEPRAZOLE [Concomitant]
  4. ATENOLOL [Concomitant]
     Route: 048
  5. VENLAFAXINE HCL EXTENDED-RELEASE [Concomitant]
  6. SIMVASTATIN [Concomitant]
  7. MICROGESTIN 1.5/30 [Concomitant]
  8. NIACIN [Concomitant]
  9. CLONAZEPAM [Concomitant]
  10. LISINOPRIL [Concomitant]
  11. METFORMIN [Concomitant]
  12. CELEBREX [Concomitant]
  13. HYDROCHLOROTHIAZIDE [Concomitant]

REACTIONS (4)
  - MALAISE [None]
  - DRUG DOSE OMISSION [None]
  - MIGRAINE [None]
  - HEADACHE [None]
